FAERS Safety Report 13429064 (Version 1)
Quarter: 2017Q2

REPORT INFORMATION
  Report Type: Spontaneous
  Country: US (occurrence: US)
  Receive Date: 20170411
  Receipt Date: 20170411
  Transmission Date: 20170830
  Serious: No
  Sender: FDA-Public Use
  Company Number: US-SHIRE-US201708057

PATIENT

DRUGS (2)
  1. VYVANSE [Suspect]
     Active Substance: LISDEXAMFETAMINE DIMESYLATE
     Indication: DEPRESSION
     Dosage: 40 MG, UNKNOWN
     Route: 048
  2. INDERAL [Concomitant]
     Active Substance: PROPRANOLOL HYDROCHLORIDE
     Indication: PRODUCT USED FOR UNKNOWN INDICATION
     Dosage: 80 MG, UNKNOWN
     Route: 048

REACTIONS (8)
  - Weight decreased [Unknown]
  - Condition aggravated [Unknown]
  - Crying [Unknown]
  - Off label use [Unknown]
  - Decreased appetite [Unknown]
  - Lethargy [Unknown]
  - Fatigue [Unknown]
  - Therapeutic response unexpected [Unknown]
